FAERS Safety Report 4288964-0 (Version None)
Quarter: 2004Q1

REPORT INFORMATION
  Report Type: 
  Country: None (occurrence: None)
  Receive Date: 20040206
  Receipt Date: 20040122
  Transmission Date: 20041129
  Serious: Yes (Other)
  Sender: FDA-Public Use
  Company Number: S03-USA-03512-01

PATIENT
  Age: 28 Year
  Sex: Female

DRUGS (9)
  1. LEXAPRO [Suspect]
     Indication: DEPRESSION
     Dosage: 10 MG QD PO
     Route: 048
     Dates: start: 20030425, end: 20030515
  2. LEXAPRO [Suspect]
     Indication: DEPRESSION
     Dosage: 10 MG QD PO
     Route: 048
     Dates: start: 20030501, end: 20030529
  3. LEXAPRO [Suspect]
     Indication: DEPRESSION
     Dosage: 5 MG QD PO
     Route: 048
     Dates: start: 20030422, end: 20030424
  4. RISPERDAL [Suspect]
     Indication: MANIA
     Dosage: 1 MG TID
     Dates: start: 20030515, end: 20031209
  5. RISPERDAL [Suspect]
     Indication: MANIA
     Dosage: 1 MG BID
     Dates: end: 20030514
  6. TRILEPTAL [Suspect]
     Indication: BIPOLAR DISORDER
     Dosage: 300 MG QAM
  7. TRILEPTAL [Suspect]
     Indication: MANIA
     Dosage: 300 MG QAM
  8. TRILEPTAL [Suspect]
     Indication: BIPOLAR DISORDER
     Dosage: 6 00 MG QHS
     Dates: start: 20030115, end: 20030926
  9. TRILEPTAL [Suspect]
     Indication: MANIA
     Dosage: 6 00 MG QHS
     Dates: start: 20030115, end: 20030926

REACTIONS (7)
  - AMNESIA [None]
  - CONVULSION [None]
  - ELECTROENCEPHALOGRAM ABNORMAL [None]
  - EPILEPSY [None]
  - HAEMATOCRIT DECREASED [None]
  - HEADACHE [None]
  - LOSS OF CONSCIOUSNESS [None]
